FAERS Safety Report 25169356 (Version 3)
Quarter: 2025Q2

REPORT INFORMATION
  Report Type: Spontaneous
  Country: US (occurrence: US)
  Receive Date: 20250407
  Receipt Date: 20250422
  Transmission Date: 20250717
  Serious: Yes (Other)
  Sender: SANDOZ
  Company Number: US-SANDOZ-SDZ2025US020800

PATIENT
  Sex: Female

DRUGS (1)
  1. BACITRACIN\NEOMYCIN\POLYMYXIN B [Suspect]
     Active Substance: BACITRACIN\NEOMYCIN\POLYMYXIN B
     Indication: Product used for unknown indication
     Route: 065

REACTIONS (7)
  - Eye haemorrhage [Unknown]
  - Eye pain [Unknown]
  - Ocular hyperaemia [Unknown]
  - Foreign body sensation in eyes [Unknown]
  - Product dose omission issue [Unknown]
  - Liquid product physical issue [Unknown]
  - Product availability issue [Unknown]
